FAERS Safety Report 10098974 (Version 1)
Quarter: 2014Q2

REPORT INFORMATION
  Report Type: Spontaneous
  Country: GB (occurrence: GB)
  Receive Date: 20140423
  Receipt Date: 20140423
  Transmission Date: 20141212
  Serious: Yes (Hospitalization, Other)
  Sender: FDA-Public Use
  Company Number: PHHY2014GB046022

PATIENT
  Sex: Female

DRUGS (1)
  1. AMLODIPINE [Suspect]
     Indication: SUBARACHNOID HAEMORRHAGE
     Dosage: 60 MG, UNK
     Route: 048
     Dates: start: 20131205

REACTIONS (2)
  - Orthostatic hypotension [Recovered/Resolved]
  - Wrong drug administered [Unknown]
